FAERS Safety Report 8384432-5 (Version None)
Quarter: 2012Q2

REPORT INFORMATION
  Report Type: 
  Country: None (occurrence: None)
  Receive Date: 20120524
  Receipt Date: 20120517
  Transmission Date: 20120825
  Serious: Yes (Hospitalization)
  Sender: FDA-Public Use
  Company Number: US-GLAXOSMITHKLINE-A0978038A

PATIENT
  Age: 9 Year
  Sex: Female

DRUGS (3)
  1. ALBUTEROL [Concomitant]
  2. ADVAIR DISKUS 100/50 [Suspect]
     Indication: ASTHMA
     Dosage: 1PUFF PER DAY
     Route: 055
     Dates: start: 20110101
  3. SINGULAIR [Concomitant]

REACTIONS (11)
  - PAIN IN EXTREMITY [None]
  - HEADACHE [None]
  - CONVULSION [None]
  - CHEST PAIN [None]
  - VOMITING [None]
  - PAIN [None]
  - PNEUMONIA [None]
  - TREMOR [None]
  - ASTHMA [None]
  - HEAD TITUBATION [None]
  - TIC [None]
